FAERS Safety Report 9181870 (Version 1)
Quarter: 2013Q1

REPORT INFORMATION
  Report Type: Spontaneous
  Country: US (occurrence: US)
  Receive Date: 20130322
  Receipt Date: 20130322
  Transmission Date: 20140127
  Serious: Yes (Other)
  Sender: FDA-Public Use
  Company Number: US-UCBSA-081041

PATIENT
  Age: 36 Year
  Sex: Female

DRUGS (6)
  1. VIMPAT [Suspect]
     Indication: EPILEPSY
     Dosage: 100MG, 2 IN AM AND 2 IN PM
     Route: 048
     Dates: start: 201103
  2. FAMOTIDINE [Concomitant]
     Indication: GASTROOESOPHAGEAL REFLUX DISEASE
     Dosage: STARTED ON 7 YEARS AGO
     Route: 048
  3. ATENOLOL [Concomitant]
     Indication: HEART RATE IRREGULAR
     Dosage: DRUG STARTED  10 YEARS
     Route: 048
  4. PAROXETINE [Concomitant]
     Indication: ANXIETY
     Dosage: DRUG STARTED: 3-4 YEARS
     Route: 048
  5. CLONOPIN [Concomitant]
     Indication: ANXIETY
     Dosage: DRUG START: 2 MONTHS
     Route: 048
  6. ONFI [Concomitant]
     Indication: CONVULSION
     Dosage: DRUG START: 2 MONTHS
     Route: 048

REACTIONS (5)
  - Fungal infection [Not Recovered/Not Resolved]
  - Convulsion [Not Recovered/Not Resolved]
  - Hot flush [Not Recovered/Not Resolved]
  - Muscle strain [Recovered/Resolved]
  - Menstrual disorder [Unknown]
